FAERS Safety Report 25714438 (Version 1)
Quarter: 2025Q3

REPORT INFORMATION
  Report Type: Spontaneous
  Country: US (occurrence: US)
  Receive Date: 20250822
  Receipt Date: 20250822
  Transmission Date: 20251020
  Serious: Yes (Hospitalization)
  Sender: AMGEN
  Company Number: US-AMGEN-USASP2025162682

PATIENT

DRUGS (2)
  1. IMDELLTRA [Suspect]
     Active Substance: TARLATAMAB-DLLE
     Indication: Small cell lung cancer
     Route: 042
  2. IMDELLTRA [Suspect]
     Active Substance: TARLATAMAB-DLLE
     Route: 042

REACTIONS (3)
  - Nervous system disorder [Unknown]
  - Immune effector cell-associated neurotoxicity syndrome [Unknown]
  - Off label use [Unknown]
